FAERS Safety Report 8602737-7 (Version None)
Quarter: 2012Q3

REPORT INFORMATION
  Report Type: 
  Country: None (occurrence: None)
  Receive Date: 20120817
  Receipt Date: 20120803
  Transmission Date: 20120928
  Serious: No
  Sender: FDA-Public Use
  Company Number: US-JNJFOC-20120610076

PATIENT
  Sex: Female
  Weight: 43.09 kg

DRUGS (4)
  1. FENTANYL-100 [Suspect]
     Indication: SCIATICA
     Route: 062
     Dates: start: 20120401, end: 20120618
  2. FENTANYL-100 [Suspect]
     Indication: CANCER PAIN
     Route: 062
     Dates: start: 20120401, end: 20120618
  3. FENTANYL-100 [Suspect]
     Route: 062
     Dates: start: 20110301, end: 20110621
  4. FENTANYL-100 [Suspect]
     Route: 062
     Dates: start: 20110301, end: 20110621

REACTIONS (2)
  - INADEQUATE ANALGESIA [None]
  - INAPPROPRIATE SCHEDULE OF DRUG ADMINISTRATION [None]
